FAERS Safety Report 7982130-0 (Version None)
Quarter: 2011Q4

REPORT INFORMATION
  Report Type: 
  Country: None (occurrence: None)
  Receive Date: 20111215
  Receipt Date: 20111212
  Transmission Date: 20120403
  Serious: No
  Sender: FDA-Public Use
  Company Number: US-PFIZER INC-2011302950

PATIENT
  Age: 21 Year
  Sex: Female
  Weight: 54.422 kg

DRUGS (2)
  1. GEODON [Suspect]
     Dosage: UNK
  2. GEODON [Suspect]
     Dosage: 80 MG, UNK

REACTIONS (3)
  - MOVEMENT DISORDER [None]
  - PROTRUSION TONGUE [None]
  - GENERAL PHYSICAL HEALTH DETERIORATION [None]
